FAERS Safety Report 9660618 (Version 3)
Quarter: 2013Q4

REPORT INFORMATION
  Report Type: Report from Study
  Country: JP (occurrence: JP)
  Receive Date: 20131031
  Receipt Date: 20131220
  Transmission Date: 20140711
  Serious: Yes (Life-Threatening, Other)
  Sender: FDA-Public Use
  Company Number: JP-SANOFI-AVENTIS-2013SA095264

PATIENT
  Age: 5 Year
  Sex: Male

DRUGS (3)
  1. EVOLTRA [Suspect]
     Indication: ACUTE LYMPHOCYTIC LEUKAEMIA RECURRENT
     Route: 042
     Dates: start: 20130902, end: 20130906
  2. ENDOXAN [Suspect]
     Indication: ACUTE LYMPHOCYTIC LEUKAEMIA RECURRENT
     Route: 042
     Dates: start: 20130902, end: 20130906
  3. ETOPOSIDE [Suspect]
     Indication: ACUTE LYMPHOCYTIC LEUKAEMIA RECURRENT
     Route: 042
     Dates: start: 20130902, end: 20130906

REACTIONS (5)
  - Respiratory failure [Recovered/Resolved]
  - Jaundice [Recovered/Resolved]
  - Oedema [Recovering/Resolving]
  - Pancytopenia [Recovering/Resolving]
  - Hepatic enzyme increased [Recovering/Resolving]
